FAERS Safety Report 15905633 (Version 1)
Quarter: 2019Q1

REPORT INFORMATION
  Report Type: Spontaneous
  Country: US (occurrence: US)
  Receive Date: 20190202
  Receipt Date: 20190202
  Transmission Date: 20190417
  Serious: Yes (Other)
  Sender: FDA-Public Use
  Company Number: None

PATIENT
  Age: 46 Year
  Sex: Female
  Weight: 108.6 kg

DRUGS (1)
  1. DALBAVANCIN. [Suspect]
     Active Substance: DALBAVANCIN
     Indication: CELLULITIS
     Dosage: ?          OTHER FREQUENCY:ONCE WEEKLY FOR 2;?
     Route: 042
     Dates: start: 20190126, end: 20190202

REACTIONS (2)
  - Infusion site pain [None]
  - Pallor [None]

NARRATIVE: CASE EVENT DATE: 20190202
